FAERS Safety Report 6523570-6 (Version None)
Quarter: 2009Q4

REPORT INFORMATION
  Report Type: 
  Country: None (occurrence: None)
  Receive Date: 20091231
  Receipt Date: 20091228
  Transmission Date: 20100525
  Serious: Yes (Other)
  Sender: FDA-Public Use
  Company Number: US-BAYER-200917898BCC

PATIENT
  Age: 20 Year
  Sex: Female
  Weight: 54 kg

DRUGS (1)
  1. MIDOL [Suspect]
     Indication: DYSMENORRHOEA
     Dosage: UNIT DOSE: 1 DF
     Route: 048

REACTIONS (2)
  - DYSPNOEA [None]
  - NERVOUSNESS [None]
